FAERS Safety Report 9372485 (Version 1)
Quarter: 2013Q2

REPORT INFORMATION
  Report Type: Report from Study
  Country: US (occurrence: US)
  Receive Date: 20130627
  Receipt Date: 20130627
  Transmission Date: 20140414
  Serious: Yes (Other)
  Sender: FDA-Public Use
  Company Number: US-MYLANLABS-2012S1025870

PATIENT
  Age: 25 Year
  Sex: Male

DRUGS (7)
  1. CLOZAPINE TABLETS [Suspect]
     Route: 048
     Dates: start: 20121114, end: 20130105
  2. BENZOTROPINE [Concomitant]
     Route: 048
  3. CYMBALTA [Concomitant]
     Route: 048
  4. DEPAKOTE ER [Concomitant]
     Route: 048
  5. PEPCID [Concomitant]
     Route: 048
  6. LOPRESSOR [Concomitant]
     Route: 048
  7. ZOCOR [Concomitant]
     Route: 048

REACTIONS (1)
  - Granulocytopenia [Not Recovered/Not Resolved]
